FAERS Safety Report 9819632 (Version 1)
Quarter: 2014Q1

REPORT INFORMATION
  Report Type: Spontaneous
  Country: PT (occurrence: PT)
  Receive Date: 20140115
  Receipt Date: 20140115
  Transmission Date: 20141002
  Serious: Yes (Other)
  Sender: FDA-Public Use
  Company Number: PT-VERTEX PHARMACEUTICALS INC-2014-000177

PATIENT
  Sex: 0

DRUGS (4)
  1. INCIVO [Suspect]
     Indication: HEPATITIS C
     Route: 065
  2. RIBAVIRIN [Suspect]
     Indication: HEPATITIS C
     Dosage: DOSAGE FORM: UNKNOWN
     Route: 065
  3. INTERFERON [Suspect]
     Indication: HEPATITIS C
     Dosage: DOSAGE FORM: UNKNOWN
     Route: 065
  4. EFAVIRENZ [Concomitant]
     Indication: HEPATITIS C
     Dosage: DOSAGE FORM: UNKNOWN
     Route: 065

REACTIONS (11)
  - Neutropenia [Unknown]
  - Jaundice [Unknown]
  - Rash [Unknown]
  - Anaemia [Unknown]
  - Virologic failure [Unknown]
  - Mouth ulceration [Unknown]
  - Treatment noncompliance [Unknown]
  - Off label use [Unknown]
  - Dysgeusia [Unknown]
  - Proctalgia [Unknown]
  - Anal pruritus [Unknown]
